FAERS Safety Report 9940487 (Version 1)
Quarter: 2014Q1

REPORT INFORMATION
  Report Type: Spontaneous
  Country: FI (occurrence: FI)
  Receive Date: 20140303
  Receipt Date: 20140303
  Transmission Date: 20141002
  Serious: Yes (Life-Threatening, Hospitalization)
  Sender: FDA-Public Use
  Company Number: FI-MYLANLABS-2014S1003865

PATIENT
  Age: 80 Year
  Sex: Female

DRUGS (4)
  1. OXAZEPAM [Suspect]
     Indication: POISONING DELIBERATE
     Dosage: APPROXIMATELY 120MG (ESTIMATED)
     Route: 048
  2. DIAZEPAM [Suspect]
     Indication: POISONING DELIBERATE
     Dosage: APPROXIMATELY 25MG (ESTIMATED)
     Route: 048
  3. DIAZEPAM [Suspect]
     Indication: OFF LABEL USE
     Dosage: APPROXIMATELY 25MG (ESTIMATED)
     Route: 048
  4. CHLORDIAZEPOXIDE [Suspect]
     Indication: POISONING DELIBERATE
     Dosage: APPROXIMATELY 25MG (ESTIMATED)
     Route: 048

REACTIONS (2)
  - Poisoning deliberate [Recovered/Resolved]
  - Loss of consciousness [Recovered/Resolved]
